FAERS Safety Report 6247860 (Version 2)
Quarter: 2013Q1

REPORT INFORMATION
  Report Type: Spontaneous
  Country: US (occurrence: US)
  Receive Date: 20070228
  Receipt Date: 20130227
  Transmission Date: 20140127
  Serious: No
  Sender: FDA-Public Use
  Company Number: US-GLAXOSMITHKLINE-A0631987A

PATIENT
  Age: 34 Year
  Sex: Female

DRUGS (2)
  1. VALTREX [Suspect]
     Indication: ORAL HERPES
     Dosage: 1CAPL TWICE PER DAY
     Route: 048
  2. VALTREX [Suspect]
     Indication: ORAL HERPES
     Dosage: 2G TWICE PER DAY
     Route: 048
     Dates: start: 20120402, end: 20120403

REACTIONS (6)
  - Abdominal pain upper [Unknown]
  - Headache [Unknown]
  - Fatigue [Unknown]
  - Influenza like illness [Unknown]
  - Abdominal pain [Not Recovered/Not Resolved]
  - Expired drug administered [Not Recovered/Not Resolved]
